FAERS Safety Report 21896886 (Version 1)
Quarter: 2023Q1

REPORT INFORMATION
  Report Type: Spontaneous
  Country: US (occurrence: None)
  Receive Date: 20230120
  Receipt Date: 20230120
  Transmission Date: 20230417
  Serious: No
  Sender: FDA-Public Use
  Company Number: None

PATIENT
  Sex: Female

DRUGS (1)
  1. HUMIRA [Suspect]
     Active Substance: ADALIMUMAB
     Indication: Rheumatoid arthritis
     Dosage: 40MG EVERY 14 DAYS SUBQ
     Route: 058
     Dates: start: 202201

REACTIONS (5)
  - Device defective [None]
  - Injection site reaction [None]
  - Injection site pruritus [None]
  - Incorrect dose administered [None]
  - Liquid product physical issue [None]
